FAERS Safety Report 8534974 (Version 9)
Quarter: 2020Q3

REPORT INFORMATION
  Report Type: Report from Study
  Country: DE (occurrence: DE)
  Receive Date: 20120427
  Receipt Date: 20200816
  Transmission Date: 20201103
  Serious: Yes (Life-Threatening, Hospitalization, Other)
  Sender: FDA-Public Use
  Company Number: PHHO2012DE005854

PATIENT
  Age: 14 Year
  Sex: Female
  Weight: 62.2 kg

DRUGS (13)
  1. CANAKINUMAB. [Suspect]
     Active Substance: CANAKINUMAB
     Dosage: 252 MG, Q4W
     Route: 048
     Dates: start: 20110316
  2. ETANERCEPT [Suspect]
     Active Substance: ETANERCEPT
     Dosage: 240 MG,(EVERY 04 WEEKS)
     Route: 042
     Dates: start: 20110316
  3. MTX [Suspect]
     Active Substance: METHOTREXATE SODIUM
     Indication: JUVENILE IDIOPATHIC ARTHRITIS
     Dosage: 15 MG, QW
     Route: 048
     Dates: start: 20100615
  4. CANAKINUMAB. [Suspect]
     Active Substance: CANAKINUMAB
     Indication: JUVENILE IDIOPATHIC ARTHRITIS
     Dosage: 4 MG/KG, QMO
     Route: 048
     Dates: start: 20100802
  5. IBUPROFEN. [Suspect]
     Active Substance: IBUPROFEN
     Indication: JUVENILE IDIOPATHIC ARTHRITIS
     Dosage: 800 MG, (2 X1 TABL, AS NEEDED)
     Route: 048
     Dates: start: 20100615
  6. IBUPROFEN. [Suspect]
     Active Substance: IBUPROFEN
     Dosage: 600 MG, QD
     Route: 048
     Dates: start: 20111201, end: 20120412
  7. ETANERCEPT [Suspect]
     Active Substance: ETANERCEPT
     Indication: PRODUCT USED FOR UNKNOWN INDICATION
     Dosage: UNK
     Route: 065
     Dates: start: 20050104, end: 20060509
  8. PANTOZOL [Concomitant]
     Active Substance: PANTOPRAZOLE SODIUM
     Indication: GASTRITIS
     Dosage: 20 MG, QD
     Route: 048
     Dates: start: 20120412
  9. MTX [Suspect]
     Active Substance: METHOTREXATE SODIUM
     Dosage: UNK
     Route: 048
     Dates: start: 20111118
  10. OMEPRAZOLE. [Concomitant]
     Active Substance: OMEPRAZOLE
     Indication: GASTRITIS
     Dosage: 20 MG, BID
     Route: 048
     Dates: start: 20100615
  11. PREDNISOLONE. [Concomitant]
     Active Substance: PREDNISOLONE
     Indication: STILL^S DISEASE
     Dosage: 100 MG, QD
     Route: 065
     Dates: start: 20111130
  12. OMEPRAZOLE. [Concomitant]
     Active Substance: OMEPRAZOLE
     Dosage: 40 MG, QD
     Route: 065
     Dates: start: 20120321, end: 20120412
  13. CANAKINUMAB. [Suspect]
     Active Substance: CANAKINUMAB
     Indication: STILL^S DISEASE
     Dosage: 249 MG
     Route: 048
     Dates: start: 20100803

REACTIONS (23)
  - Overdose [Recovered/Resolved]
  - Suicide attempt [Recovered/Resolved]
  - Drug reaction with eosinophilia and systemic symptoms [Recovered/Resolved]
  - Blood creatine phosphokinase increased [Recovered/Resolved]
  - Arthralgia [Unknown]
  - Still^s disease [Recovered/Resolved]
  - C-reactive protein increased [Recovered/Resolved]
  - Juvenile idiopathic arthritis [Unknown]
  - Blood count abnormal [Recovered/Resolved]
  - Rash [Recovered/Resolved]
  - Aspartate aminotransferase increased [Recovered/Resolved]
  - Depression suicidal [Unknown]
  - Abnormal behaviour [Recovered/Resolved]
  - White blood cell count decreased [Recovered/Resolved]
  - Anaphylactic reaction [Recovered/Resolved]
  - Poisoning [Recovered/Resolved]
  - Pain [Recovered/Resolved]
  - Serum ferritin increased [Recovered/Resolved]
  - Alanine aminotransferase increased [Recovered/Resolved]
  - Blood lactate dehydrogenase increased [Recovered/Resolved]
  - Incorrect route of product administration [Unknown]
  - Condition aggravated [Recovered/Resolved]
  - Platelet count [Recovered/Resolved]

NARRATIVE: CASE EVENT DATE: 20110316
